FAERS Safety Report 5046479-6 (Version None)
Quarter: 2006Q3

REPORT INFORMATION
  Report Type: 
  Country: None (occurrence: None)
  Receive Date: 20060706
  Receipt Date: 20060706
  Transmission Date: 20061208
  Serious: No
  Sender: FDA-Public Use
  Company Number: None

PATIENT
  Age: 37 Year
  Sex: Male
  Weight: 79.3795 kg

DRUGS (1)
  1. EFFEXOR [Suspect]
     Indication: ANXIETY
     Dosage: 75MG    ONCE PER DAY
     Dates: start: 19940510, end: 20051230

REACTIONS (10)
  - ANXIETY [None]
  - APATHY [None]
  - DISTRACTIBILITY [None]
  - FEELING ABNORMAL [None]
  - FEELING GUILTY [None]
  - ILL-DEFINED DISORDER [None]
  - IMPAIRED WORK ABILITY [None]
  - MEDICATION ERROR [None]
  - SENSORY DISTURBANCE [None]
  - SUICIDAL IDEATION [None]
